FAERS Safety Report 14670173 (Version 2)
Quarter: 2018Q2

REPORT INFORMATION
  Report Type: Spontaneous
  Country: US (occurrence: US)
  Receive Date: 20180322
  Receipt Date: 20180410
  Transmission Date: 20180711
  Serious: Yes (Other)
  Sender: FDA-Public Use
  Company Number: US-LPDUSPRD-20180373

PATIENT

DRUGS (1)
  1. METHYLERGONOVINE MALEATE INJECTION, USP (0740-20) [Suspect]
     Active Substance: METHYLERGONOVINE MALEATE
     Dosage: UNKNOWN
     Route: 065

REACTIONS (3)
  - Product packaging confusion [Unknown]
  - Wrong drug administered [Unknown]
  - Drug administered to patient of inappropriate age [Unknown]
